FAERS Safety Report 5675393-8 (Version None)
Quarter: 2008Q2

REPORT INFORMATION
  Report Type: 
  Country: None (occurrence: None)
  Receive Date: 20080307
  Receipt Date: 20070212
  Transmission Date: 20081010
  Serious: Yes (Death)
  Sender: FDA-Public Use
  Company Number: US200702002847

PATIENT
  Age: 75 Year
  Sex: Female

DRUGS (2)
  1. GEMZAR [Suspect]
     Indication: PANCREATIC CARCINOMA
     Dosage: 1000 MG/M2, OTHER, INTRAVENOUS
     Route: 042
     Dates: start: 20060504, end: 20061115
  2. ANTIHYPERTENSIVES [Concomitant]

REACTIONS (1)
  - HAEMOLYTIC URAEMIC SYNDROME [None]
